FAERS Safety Report 7422136-3 (Version None)
Quarter: 2011Q2

REPORT INFORMATION
  Report Type: 
  Country: None (occurrence: None)
  Receive Date: 20110418
  Receipt Date: 20110412
  Transmission Date: 20111010
  Serious: Yes (Hospitalization)
  Sender: FDA-Public Use
  Company Number: US-B.I. PHARMACEUTICALS,INC./RIDGEFIELD-2011-BP-10594BP

PATIENT
  Age: 71 Year
  Sex: Male

DRUGS (2)
  1. PRADAXA [Suspect]
     Dosage: 150 MG
  2. PRADAXA [Suspect]
     Dosage: 300 MG

REACTIONS (4)
  - PNEUMONIA [None]
  - ANAEMIA [None]
  - DYSPNOEA [None]
  - CARDIAC FAILURE CONGESTIVE [None]
